FAERS Safety Report 19678253 (Version 1)
Quarter: 2021Q3

REPORT INFORMATION
  Report Type: Spontaneous
  Country: DE (occurrence: DE)
  Receive Date: 20210809
  Receipt Date: 20210809
  Transmission Date: 20211014
  Serious: Yes (Hospitalization)
  Sender: FDA-Public Use
  Company Number: DE-SA-2021SA260819

PATIENT
  Age: 76 Year
  Sex: Male
  Weight: 70 kg

DRUGS (11)
  1. CALCIUM FOLINATE [Suspect]
     Active Substance: LEUCOVORIN CALCIUM
     Dosage: UNK
     Route: 042
  2. ATORVASTATIN [Concomitant]
     Active Substance: ATORVASTATIN
     Dosage: 40 MG, 0?0?1?0, TABLETS
     Route: 048
  3. CLOPIDOGREL BISULFATE. [Suspect]
     Active Substance: CLOPIDOGREL BISULFATE
     Dosage: 75 MG, 1?0?0?0, TABLETS
     Route: 048
  4. RAMIPRIL. [Concomitant]
     Active Substance: RAMIPRIL
     Dosage: 5 MG, 1?0?1?0, TABLETS
     Route: 048
  5. FLUOROURACIL. [Suspect]
     Active Substance: FLUOROURACIL
     Dosage: UNK
     Route: 042
  6. METOCLOPRAMIDE SALF [Concomitant]
     Indication: NAUSEA
     Dosage: 10 MG, TID
     Route: 048
  7. AMLODIPINE;CILAZAPRIL [Concomitant]
     Dosage: 5 MG, 1?0?0?0, TABLETS
     Route: 048
  8. SULFASALAZINE DELAYED?RELEASE [Concomitant]
     Active Substance: SULFASALAZINE
     Dosage: 1 G, 1?1?1?0, TABLETS
     Route: 048
  9. OXALIPLATIN. [Suspect]
     Active Substance: OXALIPLATIN
     Dosage: UNK
     Route: 042
  10. EZETIMIBE MSD [Concomitant]
     Active Substance: EZETIMIBE
     Dosage: 10 MG, 0?0?1?0, TABLETS
     Route: 048
  11. ESOMEPRAZOL CT [Concomitant]
     Dosage: 20 MG, 2?0?2?0, TABLETS
     Route: 048

REACTIONS (6)
  - General physical health deterioration [Unknown]
  - Haematuria [Unknown]
  - Anaemia [Unknown]
  - Pain [Unknown]
  - Pain in extremity [Unknown]
  - Fatigue [Unknown]
